FAERS Safety Report 13556770 (Version 1)
Quarter: 2017Q2

REPORT INFORMATION
  Report Type: Spontaneous
  Country: HK (occurrence: US)
  Receive Date: 20170517
  Receipt Date: 20170517
  Transmission Date: 20170830
  Serious: Yes (Hospitalization)
  Sender: FDA-Public Use
  Company Number: None

PATIENT
  Age: 39 Year
  Sex: Male
  Weight: 76 kg

DRUGS (2)
  1. 5-FLUOROURACIL (5-FU) [Suspect]
     Active Substance: FLUOROURACIL
     Dates: end: 20170415
  2. CISPLATIN. [Suspect]
     Active Substance: CISPLATIN
     Dates: end: 20170414

REACTIONS (5)
  - Dizziness [None]
  - Asthenia [None]
  - Dyspnoea [None]
  - Pruritus [None]
  - Blood pressure decreased [None]

NARRATIVE: CASE EVENT DATE: 20170502
